FAERS Safety Report 8540714-5 (Version None)
Quarter: 2012Q3

REPORT INFORMATION
  Report Type: 
  Country: None (occurrence: None)
  Receive Date: 20120726
  Receipt Date: 20120719
  Transmission Date: 20120928
  Serious: Yes (Death)
  Sender: FDA-Public Use
  Company Number: JP-JNJFOC-20120709349

PATIENT
  Age: 76 Year
  Sex: Male

DRUGS (8)
  1. VERAPAMIL HCL [Concomitant]
  2. XARELTO [Suspect]
     Indication: THROMBOSIS PROPHYLAXIS
     Route: 048
     Dates: start: 20120627, end: 20120709
  3. WARFARIN SODIUM [Suspect]
     Indication: PRODUCT USED FOR UNKNOWN INDICATION
     Dates: start: 20120627
  4. URINORM [Concomitant]
     Route: 048
  5. BISOPROLOL FUMARATE [Concomitant]
     Route: 048
  6. NITRODERM [Concomitant]
     Route: 062
  7. SYMMETREL [Concomitant]
     Route: 048
     Dates: start: 20120607, end: 20120620
  8. LANSOPRAZOLE [Concomitant]

REACTIONS (2)
  - ACUTE RESPIRATORY DISTRESS SYNDROME [None]
  - PULMONARY ALVEOLAR HAEMORRHAGE [None]
